FAERS Safety Report 7532498-4 (Version None)
Quarter: 2011Q2

REPORT INFORMATION
  Report Type: 
  Country: None (occurrence: None)
  Receive Date: 20110608
  Receipt Date: 20110526
  Transmission Date: 20111010
  Serious: Yes (Hospitalization)
  Sender: FDA-Public Use
  Company Number: PHHY2011ZA46682

PATIENT
  Sex: Male
  Weight: 140 kg

DRUGS (13)
  1. DIOVAN [Suspect]
     Dosage: 80 MG, DAILY
     Dates: start: 20110101
  2. TYLENOL-500 [Concomitant]
     Dosage: 2 DF, TID
     Dates: start: 20110101
  3. METHOTREXATE [Concomitant]
     Dosage: 7.5 MG, PER WEEK
  4. DIOVAN [Suspect]
     Dosage: UNK
     Dates: start: 20110113
  5. CRESTOR [Concomitant]
     Dosage: 80 MG, DAILY
  6. GLUCOPHAGE [Concomitant]
     Indication: DIABETES MELLITUS
     Dosage: 500 MG, BID
  7. CARLOC [Concomitant]
     Dosage: 12.5 MG, BID
  8. LERCANIDIPINE [Concomitant]
     Dosage: 10 MG, DAILY
     Dates: start: 20110101
  9. CRESTOR [Concomitant]
     Dosage: 40MG DAILY
  10. CARLOC [Concomitant]
     Dosage: 7.5 MG, BID
  11. ALLOPURINOL [Concomitant]
     Dosage: 300 MG,EVERY SECOND DAY
  12. CELEBREX [Concomitant]
     Dosage: 200 MG, DAILY
     Dates: start: 20110101
  13. FENOFIBRATE [Concomitant]
     Dosage: 400 MG, DAILY
     Dates: start: 20110101

REACTIONS (9)
  - FATIGUE [None]
  - MUSCULOSKELETAL PAIN [None]
  - ABDOMINAL DISTENSION [None]
  - PAIN [None]
  - ARTHRALGIA [None]
  - BRONCHITIS CHRONIC [None]
  - SWELLING FACE [None]
  - JOINT STIFFNESS [None]
  - JOINT SWELLING [None]
